FAERS Safety Report 13346109 (Version 1)
Quarter: 2017Q1

REPORT INFORMATION
  Report Type: Spontaneous
  Country: US (occurrence: US)
  Receive Date: 20170317
  Receipt Date: 20170317
  Transmission Date: 20170428
  Serious: No
  Sender: FDA-Public Use
  Company Number: US-GLAXOSMITHKLINE-US2017GSK037571

PATIENT
  Sex: Female
  Weight: 86.17 kg

DRUGS (1)
  1. AVANDAMET [Suspect]
     Active Substance: METFORMIN HYDROCHLORIDE\ROSIGLITAZONE MALEATE
     Indication: DIABETES MELLITUS
     Dosage: UNK, U

REACTIONS (8)
  - Blood glucose increased [Unknown]
  - Eye pain [Unknown]
  - Headache [Unknown]
  - Toothache [Unknown]
  - Ear pain [Unknown]
  - Trigeminal neuralgia [Not Recovered/Not Resolved]
  - Facial neuralgia [Not Recovered/Not Resolved]
  - Migraine [Unknown]
